FAERS Safety Report 14744915 (Version 1)
Quarter: 2018Q2

REPORT INFORMATION
  Report Type: Spontaneous
  Country: IN (occurrence: IN)
  Receive Date: 20180411
  Receipt Date: 20180411
  Transmission Date: 20180711
  Serious: Yes (Life-Threatening, Hospitalization, Other)
  Sender: FDA-Public Use
  Company Number: IN-TORRENT-00001663

PATIENT
  Age: 18 Year
  Sex: Female

DRUGS (1)
  1. AMLODIPINE [Suspect]
     Active Substance: AMLODIPINE BESYLATE
     Indication: PRODUCT USED FOR UNKNOWN INDICATION
     Dosage: 30 TABLETS
     Route: 048

REACTIONS (9)
  - Blood creatine increased [Recovered/Resolved]
  - Blood potassium decreased [Recovered/Resolved]
  - Toxicity to various agents [Recovered/Resolved]
  - Anaemia [Recovered/Resolved]
  - Distributive shock [Recovered/Resolved]
  - Intentional overdose [Recovered/Resolved]
  - Leukocytosis [Recovered/Resolved]
  - Cardiogenic shock [Recovered/Resolved]
  - Suicide attempt [Unknown]
